FAERS Safety Report 13428068 (Version 1)
Quarter: 2017Q2

REPORT INFORMATION
  Report Type: Spontaneous
  Country: FR (occurrence: FR)
  Receive Date: 20170411
  Receipt Date: 20170411
  Transmission Date: 20170830
  Serious: Yes (Hospitalization)
  Sender: FDA-Public Use
  Company Number: FR-ASTRAZENECA-2017SE37329

PATIENT
  Age: 62 Year
  Sex: Female

DRUGS (2)
  1. OMEPRAZOLE. [Suspect]
     Active Substance: OMEPRAZOLE
     Indication: HIATUS HERNIA
     Route: 048
  2. ESOMEPRAZOLE [Suspect]
     Active Substance: ESOMEPRAZOLE
     Route: 048

REACTIONS (7)
  - Dysphagia [Unknown]
  - Giardiasis [Recovered/Resolved]
  - Hypoparathyroidism [Unknown]
  - Malabsorption [Unknown]
  - Quadriparesis [Unknown]
  - Hypocalcaemia [Unknown]
  - Hypomagnesaemia [Recovered/Resolved]
